FAERS Safety Report 19143715 (Version 1)
Quarter: 2021Q2

REPORT INFORMATION
  Report Type: Report from Study
  Country: US (occurrence: US)
  Receive Date: 20210416
  Receipt Date: 20210416
  Transmission Date: 20210717
  Serious: Yes (Hospitalization)
  Sender: FDA-Public Use
  Company Number: US-INSMED, INC.-US-INS-20-01661

PATIENT
  Sex: Female

DRUGS (1)
  1. ARIKAYCE [Suspect]
     Active Substance: AMIKACIN
     Indication: MYCOBACTERIUM AVIUM COMPLEX INFECTION
     Dosage: 590 MILLIGRAM
     Route: 055
     Dates: start: 20200803, end: 20210115

REACTIONS (13)
  - Hyperhidrosis [Unknown]
  - Cough [Unknown]
  - Drug intolerance [Unknown]
  - Asthenia [Unknown]
  - Productive cough [Unknown]
  - Fatigue [Unknown]
  - Cardiac operation [Unknown]
  - Therapy interrupted [Unknown]
  - Infection [Unknown]
  - Decreased appetite [Unknown]
  - Weight decreased [Unknown]
  - Secretion discharge [Unknown]
  - Hospitalisation [Unknown]

NARRATIVE: CASE EVENT DATE: 2020
